FAERS Safety Report 9769476 (Version 1)
Quarter: 2013Q4

REPORT INFORMATION
  Report Type: Spontaneous
  Country: US (occurrence: US)
  Receive Date: 20131218
  Receipt Date: 20131218
  Transmission Date: 20140711
  Serious: No
  Sender: FDA-Public Use
  Company Number: US-JNJFOC-20131202969

PATIENT
  Sex: Male
  Weight: 83.92 kg

DRUGS (4)
  1. DURAGESIC [Suspect]
     Indication: PAIN
     Route: 062
  2. DURAGESIC [Suspect]
     Indication: MUSCLE INJURY
     Route: 062
  3. DURAGESIC [Suspect]
     Indication: NERVE INJURY
     Route: 062
  4. LYRICA [Concomitant]
     Indication: NEURALGIA
     Route: 048
     Dates: start: 201306

REACTIONS (2)
  - Drug dose omission [Unknown]
  - Product quality issue [Unknown]
